FAERS Safety Report 7582641-6 (Version None)
Quarter: 2011Q2

REPORT INFORMATION
  Report Type: 
  Country: None (occurrence: None)
  Receive Date: 20110630
  Receipt Date: 20110627
  Transmission Date: 20111010
  Serious: No
  Sender: FDA-Public Use
  Company Number: US-PFIZER INC-2011143404

PATIENT
  Sex: Female

DRUGS (2)
  1. CALAN [Concomitant]
     Indication: HYPERTENSION
     Dosage: UNK
  2. TOVIAZ [Suspect]
     Indication: BLADDER PAIN
     Dosage: 4 MG, 1X/DAY
     Route: 048
     Dates: start: 20110624

REACTIONS (5)
  - ABDOMINAL PAIN [None]
  - CONSTIPATION [None]
  - DRY MOUTH [None]
  - POLLAKIURIA [None]
  - MIDDLE INSOMNIA [None]
